FAERS Safety Report 8963240 (Version 2)
Quarter: 2014Q2

REPORT INFORMATION
  Report Type: Report from Study
  Country: BE (occurrence: BE)
  Receive Date: 20121214
  Receipt Date: 20131018
  Transmission Date: 20141212
  Serious: Yes (Hospitalization)
  Sender: FDA-Public Use
  Company Number: BE-PFIZER INC-2012310945

PATIENT
  Age: 76 Year
  Sex: Male

DRUGS (48)
  1. MEDROL [Suspect]
     Indication: PROPHYLAXIS AGAINST TRANSPLANT REJECTION
     Dosage: 4 MG, 1X/DAY
     Route: 048
     Dates: start: 20040630
  2. SOLU-MEDROL [Suspect]
     Indication: PROPHYLAXIS AGAINST TRANSPLANT REJECTION
     Dosage: 80 MG, 1X/DAY
     Route: 042
     Dates: start: 20040627, end: 20040630
  3. MYCOPHENOLATE MOFETIL [Suspect]
     Dosage: 500 MG, 2X/DAY
     Route: 048
     Dates: start: 20040627, end: 20040627
  4. MYCOPHENOLATE MOFETIL [Suspect]
     Dosage: 1000 MG, 2X/DAY
     Route: 048
     Dates: start: 20040628, end: 20040718
  5. MYCOPHENOLATE MOFETIL [Suspect]
     Dosage: 500 MG, 3X/DAY
     Route: 048
     Dates: start: 20040719, end: 20040915
  6. MYCOPHENOLATE MOFETIL [Suspect]
     Dosage: 500 MG, 2X/DAY
     Route: 048
     Dates: start: 20040916, end: 20040917
  7. MYCOPHENOLATE MOFETIL [Suspect]
     Dosage: 250 MG, 3X/DAY
     Route: 048
     Dates: start: 20040918, end: 20040920
  8. MYCOPHENOLATE MOFETIL [Suspect]
     Dosage: 500 MG, 3X/DAY
     Route: 048
     Dates: start: 20040921, end: 20040923
  9. MYCOPHENOLATE MOFETIL [Suspect]
     Dosage: 500 MG, 2X/DAY
     Route: 048
     Dates: start: 20040924, end: 20040924
  10. MYCOPHENOLATE MOFETIL [Suspect]
     Dosage: 500 MG, 1X/DAY
     Route: 048
     Dates: start: 20040925, end: 20041004
  11. MYCOPHENOLATE MOFETIL [Suspect]
     Dosage: 500 MG, 2X/DAY
     Route: 048
     Dates: start: 20041005, end: 20041005
  12. MYCOPHENOLATE MOFETIL [Suspect]
     Dosage: 500 MG, 3X/DAY
     Route: 048
     Dates: start: 20041006, end: 20041102
  13. MYCOPHENOLATE MOFETIL [Suspect]
     Dosage: 500 MG, 2X/DAY
     Route: 048
     Dates: start: 20041103, end: 20050323
  14. MYCOPHENOLATE MOFETIL [Suspect]
     Dosage: 250 MG, 2X/DAY
     Route: 048
     Dates: start: 20050324
  15. DACLIZUMAB [Suspect]
     Dosage: 120 MG, 1 TOTAL
     Route: 042
     Dates: start: 20040627, end: 20040627
  16. DACLIZUMAB [Suspect]
     Dosage: 60 MG, 1 IN 2 WK
     Route: 042
     Dates: start: 20040712
  17. TACROLIMUS [Suspect]
     Indication: PROPHYLAXIS AGAINST TRANSPLANT REJECTION
     Dosage: 1 MG, 2X/DAY
     Route: 048
     Dates: start: 20040627, end: 20041004
  18. TACROLIMUS [Suspect]
     Dosage: 0.5 MG, 2X/DAY
     Route: 048
     Dates: start: 20041005, end: 20041012
  19. TACROLIMUS [Suspect]
     Dosage: 2 MG, 2X/DAY
     Route: 048
     Dates: start: 20041013, end: 20041102
  20. TACROLIMUS [Suspect]
     Dosage: 2 MG, 2X/DAY
     Route: 048
     Dates: start: 20041103, end: 20041124
  21. TACROLIMUS [Suspect]
     Dosage: 0.5 MG, 2X/DAY
     Route: 048
     Dates: start: 20041125, end: 20050329
  22. TACROLIMUS [Suspect]
     Dosage: 1 MG, 2X/DAY
     Route: 048
     Dates: start: 20050330
  23. BACTRIM FORTE [Concomitant]
     Dosage: 400 MG, 1X/DAY
     Route: 048
     Dates: start: 20040702, end: 20041008
  24. AMLOR [Concomitant]
     Dosage: 5 MG, 1X/DAY
     Route: 048
     Dates: start: 20040629, end: 20050309
  25. ZOVIRAX [Concomitant]
     Dosage: 800 MG, 2X/DAY
     Route: 048
     Dates: start: 20040706, end: 20040726
  26. CYMEVENE [Concomitant]
     Dosage: 100 MG, 1X/DAY
     Route: 042
     Dates: start: 20040628, end: 20040706
  27. CYMEVENE [Concomitant]
     Dosage: 500 MG, 4X/DAY
     Route: 048
     Dates: start: 20040727, end: 20040921
  28. CYMEVENE [Concomitant]
     Dosage: 1000 MG, 1X/DAY
     Route: 048
     Dates: start: 20041004, end: 20041013
  29. TAVANIC [Concomitant]
     Dosage: 250 MG, 1X/DAY
     Route: 042
     Dates: start: 20040627, end: 20040629
  30. TAVANIC [Concomitant]
     Dosage: 250 MG, 1X/DAY
     Route: 048
     Dates: start: 20040922, end: 20040922
  31. TAVANIC [Concomitant]
     Dosage: 250 MG, 2X/DAY
     Route: 048
     Dates: start: 20040923, end: 20040928
  32. OMEPRAZOLE [Concomitant]
     Dosage: 20 MG, 1X/DAY
     Route: 048
     Dates: start: 20040924
  33. AREDIA [Concomitant]
     Dosage: 45 MG, EVERY 3 MONTHS
     Route: 042
     Dates: start: 20050829
  34. AUREOMYCIN [Concomitant]
     Dosage: 1 DF, 4X/DAY
     Route: 048
     Dates: start: 20040706, end: 20040713
  35. CEFACIDAL [Concomitant]
     Dosage: 1000 MG, 1X/DAY
     Route: 042
     Dates: start: 20040627, end: 20040628
  36. CIPROXINE [Concomitant]
     Dosage: 500 MG, 1X/DAY
     Route: 048
     Dates: start: 20040927, end: 20041007
  37. DIOVANE [Concomitant]
     Dosage: 80 MG, 1X/DAY
     Route: 048
     Dates: start: 20050209
  38. FLUDEX [Concomitant]
     Dosage: 2.5 MG, 1X/DAY
     Route: 048
     Dates: start: 20050613
  39. FRAXIPARINE [Concomitant]
     Dosage: 0.3 ML, 1X/DAY
     Route: 058
     Dates: start: 20041002, end: 20041018
  40. INSULIN [Concomitant]
     Dosage: 11.3 IU, 1X/DAY
     Route: 042
     Dates: start: 20040627, end: 20040629
  41. LASIX [Concomitant]
     Dosage: 40 MG, 1X/DAY
     Route: 042
     Dates: start: 20040629, end: 20040630
  42. LASIX [Concomitant]
     Dosage: 20 MG, 1X/DAY
     Route: 042
     Dates: start: 20040701, end: 20040701
  43. LASIX [Concomitant]
     Dosage: 40 MG, 1X/DAY
     Route: 048
     Dates: start: 20040702, end: 20040703
  44. LASIX [Concomitant]
     Dosage: 40 MG, 1X/DAY
     Route: 048
     Dates: start: 20040707, end: 20040708
  45. LASIX [Concomitant]
     Dosage: 40 MG, 1X/DAY
     Route: 048
     Dates: start: 20040930, end: 20041003
  46. NEORECORMON ^BOEHRINGER MANNHEIM^ [Concomitant]
     Dosage: 3000 IU, 1 IN 2 WK
     Route: 058
     Dates: start: 20040819, end: 20040908
  47. RYDENE [Concomitant]
     Dosage: 52 MG, 1X/DAY
     Route: 042
     Dates: start: 20040627, end: 20040629
  48. SELOZOK [Concomitant]
     Dosage: 50 MG, 1X/DAY
     Route: 048
     Dates: start: 20050330

REACTIONS (2)
  - Lung infection [Recovered/Resolved]
  - Parkinson^s disease [Unknown]
